FAERS Safety Report 8964654 (Version 1)
Quarter: 2012Q4

REPORT INFORMATION
  Report Type: Report from Study
  Country: ES (occurrence: ES)
  Receive Date: 20121213
  Receipt Date: 20121213
  Transmission Date: 20130627
  Serious: Yes (Hospitalization)
  Sender: FDA-Public Use
  Company Number: ES-PFIZER INC-2012310020

PATIENT
  Age: 36 Year
  Sex: Female
  Weight: 73 kg

DRUGS (14)
  1. GENOTROPIN [Suspect]
     Dosage: 0.4 mg, 1x/day,7 injections/week.
     Route: 058
     Dates: start: 20011116
  2. TIBOLONE [Concomitant]
     Indication: LUTEINIZING HORMONE DEFICIENCY
     Dosage: UNK
     Dates: start: 19980615
  3. TIBOLONE [Concomitant]
     Indication: FOLLICLE-STIMULATING HORMONE DEFICIENCY
  4. TIBOLONE [Concomitant]
     Indication: OVARIAN DISORDER
  5. TIBOLONE [Concomitant]
     Indication: HYPOGONADISM
  6. CALCIUM CARBONATE [Concomitant]
     Indication: OSTEOPENIA
     Dosage: UNK
     Dates: start: 19980715
  7. HYDROCORTISONE [Concomitant]
     Indication: ACTH DECREASED
     Dosage: UNK
     Dates: start: 19981115
  8. CABERGOLINE [Concomitant]
     Indication: HYPERPROLACTINEMIA
     Dosage: UNK
     Dates: start: 19961115
  9. XENICAL [Concomitant]
     Indication: OBESITY
     Dosage: UNK
     Dates: start: 20020507
  10. LEVOTHYROXINE [Concomitant]
     Indication: THYROID DISORDER
     Dosage: UNK
     Dates: start: 20021111
  11. LEVOTHYROXINE [Concomitant]
     Indication: PRIMARY HYPOTHYROIDISM
  12. LEVETIRACETAM [Concomitant]
     Indication: EPILEPSY
     Dosage: UNK
     Dates: start: 20021222
  13. LEVETIRACETAM [Concomitant]
     Indication: CONVULSIONS
  14. SIMVASTATIN [Concomitant]
     Indication: PURE HYPERCHOLESTEROLAEMIA
     Dosage: UNK
     Dates: start: 20030315

REACTIONS (1)
  - Varicella [Unknown]
